FAERS Safety Report 10917390 (Version 2)
Quarter: 2015Q1

REPORT INFORMATION
  Report Type: Spontaneous
  Country: DE (occurrence: DE)
  Receive Date: 20150316
  Receipt Date: 20150326
  Transmission Date: 20150721
  Serious: Yes (Life-Threatening, Hospitalization, Other)
  Sender: FDA-Public Use
  Company Number: DE-JNJFOC-20150308548

PATIENT
  Age: 14 Year
  Sex: Male
  Weight: 41 kg

DRUGS (11)
  1. REMICADE [Suspect]
     Active Substance: INFLIXIMAB
     Indication: CROHN^S DISEASE
     Dosage: PATIENT HAD RECEIVED 2 INFUSIONS
     Route: 042
     Dates: start: 20150203
  2. LOPERAMID [Concomitant]
     Active Substance: LOPERAMIDE
     Indication: DIARRHOEA
     Route: 065
     Dates: start: 2008
  3. VITAMIN D [Concomitant]
     Active Substance: CHOLECALCIFEROL
     Route: 065
  4. PREDNISOLON [Concomitant]
     Active Substance: PREDNISOLONE
     Indication: PREMEDICATION
     Route: 048
     Dates: start: 20150217
  5. TIORFAN [Concomitant]
     Active Substance: RACECADOTRIL
     Indication: DIARRHOEA
     Route: 065
     Dates: start: 2010
  6. REMICADE [Suspect]
     Active Substance: INFLIXIMAB
     Indication: COLITIS ULCERATIVE
     Dosage: PATIENT HAD RECEIVED 2 INFUSIONS
     Route: 042
     Dates: start: 20150203
  7. PREDNISOLON [Concomitant]
     Active Substance: PREDNISOLONE
     Indication: PREMEDICATION
     Route: 048
     Dates: start: 20150216
  8. REMICADE [Suspect]
     Active Substance: INFLIXIMAB
     Indication: CROHN^S DISEASE
     Route: 042
     Dates: start: 20150217, end: 20150217
  9. REMICADE [Suspect]
     Active Substance: INFLIXIMAB
     Indication: COLITIS ULCERATIVE
     Route: 042
     Dates: start: 20150217, end: 20150217
  10. REMICADE [Suspect]
     Active Substance: INFLIXIMAB
     Indication: CROHN^S DISEASE
     Dosage: 7 YEARS AGO SOME INFLIXIMAB INFUSIONS
     Route: 042
  11. REMICADE [Suspect]
     Active Substance: INFLIXIMAB
     Indication: COLITIS ULCERATIVE
     Dosage: 7 YEARS AGO SOME INFLIXIMAB INFUSIONS
     Route: 042

REACTIONS (4)
  - Anaphylactic shock [Recovered/Resolved]
  - Colectomy [Unknown]
  - Infusion related reaction [Recovered/Resolved]
  - Skin reaction [Unknown]

NARRATIVE: CASE EVENT DATE: 2007
